FAERS Safety Report 4305936-8 (Version None)
Quarter: 2004Q1

REPORT INFORMATION
  Report Type: 
  Country: None (occurrence: None)
  Receive Date: 20040225
  Receipt Date: 20040216
  Transmission Date: 20041129
  Serious: Yes (Death, Other)
  Sender: FDA-Public Use
  Company Number: 2004-02-1335

PATIENT
  Age: 79 Year
  Sex: Male

DRUGS (8)
  1. MOXIFLOXACIN HCL [Suspect]
     Indication: RESPIRATORY TRACT INFECTION
  2. ALBUTEROL [Suspect]
     Indication: CHRONIC OBSTRUCTIVE AIRWAYS DISEASE
  3. THEOPHYLLINE [Suspect]
     Indication: CHRONIC OBSTRUCTIVE AIRWAYS DISEASE
     Dosage: 400 MG/D
  4. FUROSEMIDE [Suspect]
     Indication: CARDIAC FAILURE
  5. POTASSIUM SUPPLEMENT (NOS) [Suspect]
  6. WARFARIN SODIUM [Suspect]
     Indication: ATRIAL FIBRILLATION
  7. DIGOXIN [Suspect]
     Indication: CARDIAC FAILURE
  8. OMEPRAZOLE [Suspect]
     Indication: DYSPEPSIA

REACTIONS (2)
  - RESPIRATORY FAILURE [None]
  - STATUS EPILEPTICUS [None]
